FAERS Safety Report 8091569-7 (Version None)
Quarter: 2012Q1

REPORT INFORMATION
  Report Type: 
  Country: None (occurrence: None)
  Receive Date: 20120131
  Receipt Date: 20120125
  Transmission Date: 20120608
  Serious: No
  Sender: FDA-Public Use
  Company Number: US-PFIZER INC-2012021008

PATIENT
  Sex: Male
  Weight: 65.76 kg

DRUGS (2)
  1. IBUPROFEN (ADVIL) [Suspect]
     Indication: HEADACHE
     Dosage: 200 MG, TWO TABLETS IN A DAY
     Route: 065
     Dates: start: 20120123, end: 20120124
  2. IBUPROFEN (ADVIL) [Suspect]
     Indication: BACK PAIN
     Dosage: 200 MG, THREE TABLETS IN A DAY
     Route: 065
     Dates: start: 20120125

REACTIONS (2)
  - NAUSEA [None]
  - DIZZINESS [None]
